FAERS Safety Report 22605289 (Version 1)
Quarter: 2023Q2

REPORT INFORMATION
  Report Type: Report from Study
  Country: CA (occurrence: CA)
  Receive Date: 20230615
  Receipt Date: 20230615
  Transmission Date: 20230721
  Serious: Yes (Other)
  Sender: FDA-Public Use
  Company Number: CA-GILEAD-2023-0624087

PATIENT
  Sex: Female

DRUGS (4)
  1. SACITUZUMAB GOVITECAN-HZIY [Suspect]
     Active Substance: SACITUZUMAB GOVITECAN-HZIY
     Indication: Triple negative breast cancer
     Dosage: 680 MG
     Route: 042
     Dates: start: 20230329
  2. SACITUZUMAB GOVITECAN-HZIY [Suspect]
     Active Substance: SACITUZUMAB GOVITECAN-HZIY
     Dosage: 664 MG
     Route: 042
     Dates: end: 20230517
  3. PLATINUM [Concomitant]
     Active Substance: PLATINUM
  4. ELIQUIS [Concomitant]
     Active Substance: APIXABAN

REACTIONS (3)
  - Disease progression [Unknown]
  - Weight increased [Unknown]
  - Inappropriate schedule of product administration [Unknown]
